FAERS Safety Report 7743277-7 (Version None)
Quarter: 2011Q3

REPORT INFORMATION
  Report Type: 
  Country: None (occurrence: None)
  Receive Date: 20110912
  Receipt Date: 20110630
  Transmission Date: 20111222
  Serious: Yes (Hospitalization)
  Sender: FDA-Public Use
  Company Number: IT-PFIZER INC-2011134836

PATIENT

DRUGS (5)
  1. PANTOPRAZOLE [Concomitant]
     Dosage: 1 TABLET
     Route: 048
  2. ANTEPSIN [Concomitant]
     Dosage: 1 PACKET
     Route: 048
  3. LASIX [Concomitant]
     Dosage: 25 MG, UNK
     Route: 048
  4. SUTENT [Suspect]
     Indication: RENAL CANCER
     Dosage: 25 MG, 1X/DAY
     Route: 048
     Dates: start: 20081103, end: 20090313
  5. ASPIRIN [Concomitant]
     Dosage: 1 TABLET
     Route: 048

REACTIONS (1)
  - ACUTE MYOCARDIAL INFARCTION [None]
